FAERS Safety Report 6100409-4 (Version None)
Quarter: 2009Q1

REPORT INFORMATION
  Report Type: 
  Country: None (occurrence: None)
  Receive Date: 20090227
  Receipt Date: 20090227
  Transmission Date: 20090719
  Serious: Yes (Other)
  Sender: FDA-Public Use
  Company Number: None

PATIENT
  Age: 12 Year
  Sex: Female
  Weight: 47.6277 kg

DRUGS (2)
  1. GEODON [Suspect]
     Indication: BIPOLAR DISORDER
     Dosage: 1 CAPSULE ONCE/DAY PO
     Route: 048
     Dates: start: 20081123, end: 20081201
  2. GEODON [Suspect]
     Indication: PSYCHOTIC DISORDER
     Dosage: 1 CAPSULE ONCE/DAY PO
     Route: 048
     Dates: start: 20081123, end: 20081201

REACTIONS (4)
  - BLOOD PRESSURE DECREASED [None]
  - DEPRESSED LEVEL OF CONSCIOUSNESS [None]
  - LOSS OF CONSCIOUSNESS [None]
  - PULSE PRESSURE DECREASED [None]
